FAERS Safety Report 19116129 (Version 4)
Quarter: 2021Q2

REPORT INFORMATION
  Report Type: Spontaneous
  Country: BE (occurrence: BE)
  Receive Date: 20210409
  Receipt Date: 20210520
  Transmission Date: 20210717
  Serious: Yes (Other)
  Sender: FDA-Public Use
  Company Number: BE-TEVA-2021-BE-1900348

PATIENT
  Sex: Female

DRUGS (6)
  1. ATRA [Suspect]
     Active Substance: TRETINOIN
     Dosage: DAY 1 STARTED
     Route: 065
  2. TRISENOX [Suspect]
     Active Substance: ARSENIC TRIOXIDE
     Dosage: DAY 2: STARTED, DAY 6: STOPPED
     Route: 042
  3. TRISENOX [Suspect]
     Active Substance: ARSENIC TRIOXIDE
     Dosage: DAY 11: RESTARTED
     Route: 042
  4. HYDROXYUREA. [Concomitant]
     Active Substance: HYDROXYUREA
  5. VESANOID [Concomitant]
     Active Substance: TRETINOIN
     Route: 048
  6. TRISENOX [Suspect]
     Active Substance: ARSENIC TRIOXIDE
     Dosage: DAY 74, STARTED THE CONSOLIDATION WITH TRISENOX, 4 CYCLI
     Route: 042

REACTIONS (12)
  - Transaminases increased [Recovered/Resolved]
  - Deafness neurosensory [Recovered/Resolved]
  - Blast cell count increased [Recovered/Resolved]
  - Pruritus [Unknown]
  - Disturbance in attention [Recovering/Resolving]
  - White blood cell count increased [Unknown]
  - Headache [Recovered/Resolved]
  - Bone marrow myelogram abnormal [Recovered/Resolved]
  - Illness [Recovering/Resolving]
  - Neuropathy peripheral [Recovered/Resolved]
  - Memory impairment [Recovering/Resolving]
  - Promyelocyte count increased [Not Recovered/Not Resolved]

NARRATIVE: CASE EVENT DATE: 20180530
